FAERS Safety Report 9870046 (Version 1)
Quarter: 2014Q1

REPORT INFORMATION
  Report Type: Spontaneous
  Country: US (occurrence: US)
  Receive Date: 20140205
  Receipt Date: 20140205
  Transmission Date: 20141002
  Serious: No
  Sender: FDA-Public Use
  Company Number: US-GLAXOSMITHKLINE-A1043728A

PATIENT
  Sex: 0

DRUGS (1)
  1. VALTREX [Suspect]
     Indication: HERPES SIMPLEX
     Route: 064

REACTIONS (3)
  - Ear infection [Unknown]
  - Birth mark [Unknown]
  - Foetal exposure during pregnancy [Unknown]
